FAERS Safety Report 13236950 (Version 1)
Quarter: 2017Q1

REPORT INFORMATION
  Report Type: Spontaneous
  Country: US (occurrence: US)
  Receive Date: 20170215
  Receipt Date: 20170215
  Transmission Date: 20170428
  Serious: No
  Sender: FDA-Public Use
  Company Number: US-MISSION PHARMACAL COMPANY-1063144

PATIENT
  Age: 59 Year
  Sex: Male

DRUGS (1)
  1. THIOLA [Suspect]
     Active Substance: TIOPRONIN
     Indication: NEPHROLITHIASIS
     Route: 065
     Dates: start: 20170125

REACTIONS (4)
  - Epigastric discomfort [Unknown]
  - Flatulence [Unknown]
  - Rash [Recovering/Resolving]
  - Drug dose omission [Unknown]
